FAERS Safety Report 6086895-7 (Version None)
Quarter: 2009Q1

REPORT INFORMATION
  Report Type: 
  Country: None (occurrence: None)
  Receive Date: 20090223
  Receipt Date: 20090213
  Transmission Date: 20090719
  Serious: Yes (Life-Threatening, Hospitalization)
  Sender: FDA-Public Use
  Company Number: US-AVENTIS-200911283US

PATIENT
  Age: 60 Year
  Sex: Male

DRUGS (2)
  1. TAXOTERE [Suspect]
     Dosage: DOSE: UNK
     Route: 042
  2. POTASSIUM CHLORIDE [Concomitant]
     Dosage: DOSE: UNK

REACTIONS (1)
  - APPARENT LIFE THREATENING EVENT [None]
